FAERS Safety Report 9878054 (Version 3)
Quarter: 2014Q1

REPORT INFORMATION
  Report Type: Spontaneous
  Country: US (occurrence: US)
  Receive Date: 20140206
  Receipt Date: 20140318
  Transmission Date: 20141002
  Serious: Yes (Hospitalization)
  Sender: FDA-Public Use
  Company Number: US-BAXTER-2014BAX005511

PATIENT
  Sex: Male

DRUGS (6)
  1. DIANEAL LOW CALCIUM (ULTRABAG) [Suspect]
     Indication: PERITONEAL DIALYSIS
     Route: 033
     Dates: start: 20111213
  2. DIANEAL LOW CALCIUM (ULTRABAG) [Suspect]
     Route: 033
     Dates: start: 20111213
  3. DIANEAL LOW CALCIUM (ULTRABAG) [Suspect]
     Route: 033
     Dates: start: 2014
  4. DIANEAL LOW CALCIUM (ULTRABAG) [Suspect]
     Route: 033
     Dates: start: 2014
  5. EXTRANEAL [Suspect]
     Indication: PERITONEAL DIALYSIS
     Route: 033
     Dates: start: 20111213
  6. EXTRANEAL [Suspect]
     Route: 033
     Dates: start: 2014

REACTIONS (5)
  - Staphylococcal infection [Recovered/Resolved]
  - Bacterial test positive [Recovered/Resolved]
  - Arthropod bite [Recovered/Resolved]
  - Abscess [Recovered/Resolved]
  - Peritonitis bacterial [Recovered/Resolved]
